FAERS Safety Report 16130266 (Version 2)
Quarter: 2019Q3

REPORT INFORMATION
  Report Type: Spontaneous
  Country: US (occurrence: US)
  Receive Date: 20190328
  Receipt Date: 20190705
  Transmission Date: 20191004
  Serious: Yes (Death)
  Sender: FDA-Public Use
  Company Number: US-PROCTER_AND_GAMBLE-GS19030804

PATIENT
  Age: 22 Month
  Sex: Male

DRUGS (2)
  1. ORALBMANDENTIFRICEKIDSPRINCESS (SODIUM FLUORIDE) [Suspect]
     Active Substance: SODIUM FLUORIDE
     Route: 048
  2. ORAL-B BATTERY POWERED TOOTHBRUSH [Concomitant]

REACTIONS (10)
  - Fluorosis [Fatal]
  - Accidental exposure to product by child [Unknown]
  - Respiratory arrest [Unknown]
  - Crying [Unknown]
  - Consciousness fluctuating [Unknown]
  - Sensorimotor disorder [Unknown]
  - Exposure via ingestion [Unknown]
  - Seizure [Unknown]
  - Dyspnoea [Unknown]
  - Cyanosis [Unknown]

NARRATIVE: CASE EVENT DATE: 20131221
